FAERS Safety Report 5942747-1 (Version None)
Quarter: 2008Q4

REPORT INFORMATION
  Report Type: 
  Country: None (occurrence: None)
  Receive Date: 20081103
  Receipt Date: 20081025
  Transmission Date: 20090506
  Serious: Yes (Hospitalization)
  Sender: FDA-Public Use
  Company Number: CHPA2008US18112

PATIENT
  Age: 86 Year
  Sex: Male

DRUGS (6)
  1. BENEFIBER PLUS CALCIUM WITH WHEAT DEXTRIN (NCH) (WHEAT DEXTRIN) POWDER [Suspect]
     Indication: NUTRITIONAL SUPPORT
     Dosage: 3 TSP, QD, ORAL
     Route: 048
     Dates: start: 20080901, end: 20081017
  2. BENEFIBER W/ WHEAT DEXTRIN (NCH) (WHEAT DEXTRIN) POWDER [Suspect]
     Dosage: 3 TSP, QD, ORAL
     Route: 048
     Dates: end: 20080901
  3. ENAPRIL ^EXCELL^ (ENALAPRIL) [Concomitant]
  4. ARICEPT [Concomitant]
  5. BUSPAR [Concomitant]
  6. ASPIRIN [Concomitant]

REACTIONS (9)
  - ARRHYTHMIA [None]
  - BLOOD MAGNESIUM DECREASED [None]
  - BLOOD POTASSIUM DECREASED [None]
  - DEHYDRATION [None]
  - DIARRHOEA [None]
  - DIZZINESS [None]
  - FREQUENT BOWEL MOVEMENTS [None]
  - HYPOTENSION [None]
  - INCORRECT DOSE ADMINISTERED [None]
